FAERS Safety Report 9206636 (Version 1)
Quarter: 2013Q2

REPORT INFORMATION
  Report Type: Spontaneous
  Country: US (occurrence: None)
  Receive Date: 20130401
  Receipt Date: 20130401
  Transmission Date: 20140414
  Serious: Yes (Hospitalization)
  Sender: FDA-Public Use
  Company Number: None

PATIENT
  Age: 9 Year
  Sex: Male
  Weight: 51.5 kg

DRUGS (3)
  1. CYTARABINE [Suspect]
     Dates: end: 20121130
  2. MITOXANTRONE HYDROCHLORIDE [Suspect]
     Dates: end: 20121130
  3. TRETINOIN [Suspect]
     Dates: end: 20121130

REACTIONS (4)
  - Pyrexia [None]
  - Neutropenia [None]
  - Streptococcus test positive [None]
  - Moraxella test positive [None]
